FAERS Safety Report 7542523-2 (Version None)
Quarter: 2011Q2

REPORT INFORMATION
  Report Type: 
  Country: None (occurrence: None)
  Receive Date: 20110613
  Receipt Date: 20110608
  Transmission Date: 20111010
  Serious: Yes (Hospitalization)
  Sender: FDA-Public Use
  Company Number: BR-ABBOTT-11P-020-0731288-00

PATIENT
  Sex: Female
  Weight: 47 kg

DRUGS (6)
  1. HUMIRA [Suspect]
     Indication: RHEUMATOID ARTHRITIS
     Route: 058
     Dates: start: 20110101
  2. METHOTREXATE [Concomitant]
     Indication: RHEUMATOID ARTHRITIS
     Route: 048
  3. PREDNISONE [Concomitant]
     Indication: PROPHYLAXIS
     Route: 048
  4. PREDNISONE [Concomitant]
     Indication: RENAL DISORDER
  5. FOLIC ACID [Concomitant]
     Indication: PRODUCT USED FOR UNKNOWN INDICATION
     Route: 048
  6. SODIUM DICLOFENAC [Concomitant]
     Indication: PAIN
     Route: 048

REACTIONS (3)
  - GENERALISED OEDEMA [None]
  - ANAEMIA [None]
  - URINARY TRACT INFECTION [None]
